FAERS Safety Report 11459831 (Version 3)
Quarter: 2015Q3

REPORT INFORMATION
  Report Type: Spontaneous
  Country: DE (occurrence: DE)
  Receive Date: 20150904
  Receipt Date: 20150921
  Transmission Date: 20151125
  Serious: Yes (Other)
  Sender: FDA-Public Use
  Company Number: DE-AMGEN-DEUSP2015089901

PATIENT
  Age: 63 Year
  Sex: Male
  Weight: 104 kg

DRUGS (3)
  1. XGEVA [Suspect]
     Active Substance: DENOSUMAB
     Indication: METASTASES TO BONE
     Dosage: 120 MG, Q4WK
     Route: 058
     Dates: start: 20150810, end: 20150810
  2. VITAMIN D                          /00107901/ [Concomitant]
     Active Substance: ERGOCALCIFEROL
     Dosage: 400 UNK, BID
     Dates: start: 20150810
  3. CALCIMAGON                         /00751501/ [Concomitant]
     Active Substance: CALCIUM CARBONATE
     Indication: PROSTATE CANCER
     Dosage: 600 MG, 400 IU, BID
     Route: 048
     Dates: start: 20150810

REACTIONS (4)
  - Hypocalcaemia [Not Recovered/Not Resolved]
  - Muscle spasms [Not Recovered/Not Resolved]
  - Muscle twitching [Unknown]
  - Tetany [Not Recovered/Not Resolved]

NARRATIVE: CASE EVENT DATE: 20150825
